FAERS Safety Report 6613256-1 (Version None)
Quarter: 2010Q1

REPORT INFORMATION
  Report Type: 
  Country: None (occurrence: None)
  Receive Date: 20100304
  Receipt Date: 20100224
  Transmission Date: 20100710
  Serious: Yes (Life-Threatening, Hospitalization, Other)
  Sender: FDA-Public Use
  Company Number: US-PURDUE-USA-2010-0042428

PATIENT
  Sex: Male

DRUGS (1)
  1. BETADINE SURGICAL SCRUB 7.5% [Suspect]
     Indication: DRUG USE FOR UNKNOWN INDICATION
     Dosage: UNK
     Dates: start: 20090915, end: 20090915

REACTIONS (6)
  - DEBRIDEMENT [None]
  - DRUG HYPERSENSITIVITY [None]
  - MULTI-ORGAN FAILURE [None]
  - POST PROCEDURAL COMPLICATION [None]
  - SKIN GRAFT [None]
  - SOFT TISSUE NECROSIS [None]
